FAERS Safety Report 18729530 (Version 1)
Quarter: 2021Q1

REPORT INFORMATION
  Report Type: Spontaneous
  Country: US (occurrence: US)
  Receive Date: 20210111
  Receipt Date: 20210111
  Transmission Date: 20210419
  Serious: Yes (Other)
  Sender: FDA-Public Use
  Company Number: None

PATIENT
  Age: 4 Year
  Sex: Female
  Weight: 16.2 kg

DRUGS (1)
  1. WALGREENS CHILDREN GLYCERIN LAXATIVE [Suspect]
     Active Substance: GLYCERIN
     Indication: CONSTIPATION
     Dosage: ?          QUANTITY:1 SUPPOSITORY(IES);?
     Route: 048
     Dates: start: 20210111, end: 20210111

REACTIONS (3)
  - Incorrect route of product administration [None]
  - Failure of child resistant product closure [None]
  - Accidental poisoning [None]

NARRATIVE: CASE EVENT DATE: 20210111
